FAERS Safety Report 10792412 (Version 2)
Quarter: 2015Q1

REPORT INFORMATION
  Report Type: Report from Study
  Country: US (occurrence: US)
  Receive Date: 20150213
  Receipt Date: 20150213
  Transmission Date: 20150721
  Serious: Yes (Hospitalization, Congenital Anomaly, Other)
  Sender: FDA-Public Use
  Company Number: US-ABBVIE-14P-163-1215079-00

PATIENT
  Sex: Female

DRUGS (1)
  1. HUMIRA [Suspect]
     Active Substance: ADALIMUMAB
     Indication: CROHN^S DISEASE
     Route: 058
     Dates: start: 20131009, end: 201409

REACTIONS (13)
  - Photophobia [Not Recovered/Not Resolved]
  - Abortion spontaneous [Unknown]
  - Hormone level abnormal [Unknown]
  - Ectopic pregnancy [Unknown]
  - Anuria [Recovered/Resolved]
  - Sepsis [Recovered/Resolved]
  - Hyperacusis [Not Recovered/Not Resolved]
  - Blood potassium increased [Recovered/Resolved]
  - Renal failure [Recovered/Resolved]
  - Urinary tract infection [Recovered/Resolved]
  - Dysuria [Recovered/Resolved]
  - Headache [Recovered/Resolved]
  - Headache [Not Recovered/Not Resolved]

NARRATIVE: CASE EVENT DATE: 2014
